FAERS Safety Report 9835016 (Version 1)
Quarter: 2014Q1

REPORT INFORMATION
  Report Type: Spontaneous
  Country: US (occurrence: US)
  Receive Date: 20140122
  Receipt Date: 20140122
  Transmission Date: 20141002
  Serious: Yes (Other)
  Sender: FDA-Public Use
  Company Number: US-ACTAVIS-2014-00188

PATIENT
  Sex: Female

DRUGS (1)
  1. METOPROLOL (WATSON LABORATORIES) [Suspect]
     Indication: HYPERTENSION
     Dosage: 50 MG, BID
     Route: 048

REACTIONS (4)
  - Drug ineffective [Recovered/Resolved]
  - Drug clearance increased [Unknown]
  - Drug metabolising enzyme increased [Unknown]
  - Maternal exposure during pregnancy [Recovered/Resolved]
